FAERS Safety Report 4990409-X (Version None)
Quarter: 2006Q2

REPORT INFORMATION
  Report Type: 
  Country: None (occurrence: None)
  Receive Date: 20060427
  Receipt Date: 20060418
  Transmission Date: 20061013
  Serious: Yes (Hospitalization)
  Sender: FDA-Public Use
  Company Number: FRWYE560818APR06

PATIENT
  Age: 41 Year
  Sex: Female

DRUGS (4)
  1. EFFEXOR XR [Suspect]
     Indication: DEPRESSION
     Dosage: 37.5 MG 1X PER 1 DAY
     Route: 048
     Dates: start: 20060301
  2. STAGID (METFORMIN EMBONATE) [Concomitant]
  3. AMARYL [Concomitant]
  4. AVANDIA [Concomitant]

REACTIONS (3)
  - DIABETES MELLITUS INADEQUATE CONTROL [None]
  - DRUG INEFFECTIVE [None]
  - GAMMA-GLUTAMYLTRANSFERASE INCREASED [None]
